FAERS Safety Report 5126568-8 (Version None)
Quarter: 2006Q4

REPORT INFORMATION
  Report Type: 
  Country: None (occurrence: None)
  Receive Date: 20061012
  Receipt Date: 20061012
  Transmission Date: 20070319
  Serious: No
  Sender: FDA-Public Use
  Company Number: None

PATIENT
  Sex: Female
  Weight: 45.3597 kg

DRUGS (1)
  1. ACTONEL [Suspect]
     Indication: OSTEOPOROSIS
     Dosage: ONE PILL    ONCE WEEKLY   PO
     Route: 048
     Dates: start: 20040919, end: 20060919

REACTIONS (2)
  - ARTHRALGIA [None]
  - BONE PAIN [None]
